FAERS Safety Report 6524398-3 (Version None)
Quarter: 2010Q1

REPORT INFORMATION
  Report Type: 
  Country: None (occurrence: None)
  Receive Date: 20100101
  Receipt Date: 20091221
  Transmission Date: 20100710
  Serious: Yes (Hospitalization, Other)
  Sender: FDA-Public Use
  Company Number: GB-RANBAXY-2007RR-06406

PATIENT

DRUGS (3)
  1. IBUPROFEN [Suspect]
     Indication: VIRAEMIA
     Dosage: 200 MG, TID
     Route: 048
  2. PARACETAMOL [Concomitant]
     Indication: VIRAEMIA
     Dosage: 500 MG, QID
     Route: 065
  3. CEFTRIAXONE [Concomitant]
     Indication: LUNG CONSOLIDATION
     Route: 042

REACTIONS (25)
  - ABDOMINAL PAIN [None]
  - ANURIA [None]
  - BACK PAIN [None]
  - BLOOD CREATININE INCREASED [None]
  - BREATH SOUNDS ABNORMAL [None]
  - HAEMATURIA [None]
  - LUNG CONSOLIDATION [None]
  - MALAISE [None]
  - MUSCULOSKELETAL STIFFNESS [None]
  - OEDEMA PERIPHERAL [None]
  - PERITONEAL DISORDER [None]
  - PERITONITIS [None]
  - PYELOCALIECTASIS [None]
  - PYREXIA [None]
  - RASH MACULAR [None]
  - RENAL DISORDER [None]
  - RENAL PAPILLARY NECROSIS [None]
  - SOMNOLENCE [None]
  - URETERAL DISORDER [None]
  - URETERIC OBSTRUCTION [None]
  - URETERIC STENOSIS [None]
  - URETHRAL HAEMORRHAGE [None]
  - URINE OUTPUT DECREASED [None]
  - VIRAEMIA [None]
  - VOMITING [None]
